FAERS Safety Report 16396676 (Version 1)
Quarter: 2019Q2

REPORT INFORMATION
  Report Type: Spontaneous
  Country: US (occurrence: US)
  Receive Date: 20190606
  Receipt Date: 20190606
  Transmission Date: 20190711
  Serious: No
  Sender: FDA-Public Use
  Company Number: US-SHIRE-US201847713

PATIENT
  Age: 88 Year
  Sex: Female

DRUGS (1)
  1. TAKHZYRO [Suspect]
     Active Substance: LANADELUMAB-FLYO
     Indication: OFF LABEL USE
     Dosage: 300 MG, 1X/2WKS
     Route: 058
     Dates: start: 20181026

REACTIONS (6)
  - Infusion related reaction [Unknown]
  - Off label use [Unknown]
  - Hereditary angioedema [Unknown]
  - Rash erythematous [Not Recovered/Not Resolved]
  - Inappropriate schedule of product administration [Unknown]
  - Pruritus [Not Recovered/Not Resolved]

NARRATIVE: CASE EVENT DATE: 20181206
